FAERS Safety Report 10727256 (Version 1)
Quarter: 2015Q1

REPORT INFORMATION
  Report Type: Spontaneous
  Country: DE (occurrence: DE)
  Receive Date: 20150121
  Receipt Date: 20150121
  Transmission Date: 20150721
  Serious: Yes (Other)
  Sender: FDA-Public Use
  Company Number: DE-BRISTOL-MYERS SQUIBB COMPANY-17143868

PATIENT
  Sex: Female

DRUGS (4)
  1. METHOTREXATE [Concomitant]
     Active Substance: METHOTREXATE
  2. ORENCIA [Suspect]
     Active Substance: ABATACEPT
     Indication: PRODUCT USED FOR UNKNOWN INDICATION
     Dosage: 125 MG, UNK
     Route: 058
     Dates: start: 201211
  3. EVOXAC [Concomitant]
     Active Substance: CEVIMELINE HYDROCHLORIDE
     Indication: CONJUNCTIVITIS
  4. CORTISONE [Concomitant]
     Active Substance: CORTISONE\HYDROCORTISONE

REACTIONS (12)
  - Drug ineffective [Unknown]
  - Hyperhidrosis [Unknown]
  - Headache [Unknown]
  - Gingivitis [Unknown]
  - Therapeutic response decreased [Unknown]
  - Conjunctivitis [Unknown]
  - Fatigue [Unknown]
  - Chills [Recovered/Resolved]
  - Respiratory tract infection [Unknown]
  - Abdominal wall haematoma [Unknown]
  - Dry mouth [Unknown]
  - Macule [Unknown]
